FAERS Safety Report 14975698 (Version 1)
Quarter: 2018Q2

REPORT INFORMATION
  Report Type: Spontaneous
  Country: US (occurrence: US)
  Receive Date: 20180605
  Receipt Date: 20180605
  Transmission Date: 20180711
  Serious: No
  Sender: FDA-Public Use
  Company Number: US-ROCHE-1974415

PATIENT
  Sex: Female

DRUGS (7)
  1. METHOTREXATE. [Concomitant]
     Active Substance: METHOTREXATE
     Route: 065
     Dates: start: 201306, end: 201309
  2. HYDROXYCHLOROQUINE [Concomitant]
     Active Substance: HYDROXYCHLOROQUINE
     Route: 065
     Dates: start: 201406, end: 201410
  3. SIMPONI ARIA [Concomitant]
     Active Substance: GOLIMUMAB
     Route: 065
     Dates: start: 201602, end: 201606
  4. LEFLUNOMIDE. [Concomitant]
     Active Substance: LEFLUNOMIDE
     Route: 065
     Dates: start: 201311, end: 201402
  5. ACTEMRA [Suspect]
     Active Substance: TOCILIZUMAB
     Indication: RHEUMATOID ARTHRITIS
     Route: 065
     Dates: start: 201410, end: 201512
  6. ORENCIA [Concomitant]
     Active Substance: ABATACEPT
     Route: 065
     Dates: start: 201609, end: 201707
  7. XELJANZ [Concomitant]
     Active Substance: TOFACITINIB CITRATE
     Dosage: REFIILS: 11
     Route: 048

REACTIONS (2)
  - No adverse event [Unknown]
  - Drug ineffective [Unknown]
